FAERS Safety Report 25845751 (Version 1)
Quarter: 2025Q3

REPORT INFORMATION
  Report Type: Spontaneous
  Country: US (occurrence: None)
  Receive Date: 20250924
  Receipt Date: 20250924
  Transmission Date: 20251020
  Serious: Yes (unspecified)
  Sender: FDA-CTU
  Company Number: None

PATIENT
  Age: 69 Year
  Sex: Male
  Weight: 68.9 kg

DRUGS (1)
  1. LEVETIRACETAM [Suspect]
     Active Substance: LEVETIRACETAM
     Dosage: FREQUENCY : TWICE A DAY;?
     Route: 048
     Dates: start: 20250805, end: 20250828

REACTIONS (4)
  - Sepsis [None]
  - Eosinophilia [None]
  - Therapy cessation [None]
  - Rash erythematous [None]

NARRATIVE: CASE EVENT DATE: 20250827
